FAERS Safety Report 21839754 (Version 1)
Quarter: 2023Q1

REPORT INFORMATION
  Report Type: Other
  Country: FR (occurrence: FR)
  Receive Date: 20230109
  Receipt Date: 20230109
  Transmission Date: 20230418
  Serious: No
  Sender: FDA-Public Use
  Company Number: FR-TOLMAR, INC.-22FR038168

PATIENT
  Age: 57 Year
  Sex: Male
  Weight: 93 kg

DRUGS (3)
  1. ELIGARD [Suspect]
     Active Substance: LEUPROLIDE ACETATE
     Indication: Prostate cancer recurrent
     Dosage: 45 MILLIGRAM, Q 6 MONTH
     Dates: start: 202203
  2. RADIATION THERAPY [Suspect]
     Active Substance: RADIATION THERAPY
     Indication: Prostate cancer recurrent
     Dosage: 1 MONTH
  3. UNSPECIFIED INGREDIENT [Concomitant]
     Active Substance: UNSPECIFIED INGREDIENT
     Indication: Hypertension

REACTIONS (5)
  - Pollakiuria [Unknown]
  - Mucosal prolapse syndrome [Unknown]
  - Radiation injury [Unknown]
  - Diarrhoea [Unknown]
  - Dysuria [Unknown]
